FAERS Safety Report 9311120 (Version 2)
Quarter: 2013Q2

REPORT INFORMATION
  Report Type: Spontaneous
  Country: US (occurrence: US)
  Receive Date: 20130528
  Receipt Date: 20130604
  Transmission Date: 20140414
  Serious: No
  Sender: FDA-Public Use
  Company Number: US-PFIZER INC-2013160906

PATIENT
  Age: 86 Year
  Sex: Female
  Weight: 88 kg

DRUGS (6)
  1. LEVOXYL [Suspect]
     Indication: THYROID DISORDER
     Dosage: 75 MG, UNK
  2. METOPROLOL [Concomitant]
     Indication: HYPERTENSION
     Dosage: UNK
  3. SIMVASTATIN [Concomitant]
     Indication: BLOOD CHOLESTEROL INCREASED
     Dosage: UNK
  4. IRON [Concomitant]
     Dosage: UNK
  5. FUROSEMIDE [Concomitant]
     Indication: DIURETIC THERAPY
     Dosage: UNK
  6. SENNA-S [Concomitant]
     Indication: CONSTIPATION
     Dosage: UNK

REACTIONS (1)
  - Blood thyroid stimulating hormone increased [Unknown]
